FAERS Safety Report 7068416-5 (Version None)
Quarter: 2010Q4

REPORT INFORMATION
  Report Type: 
  Country: None (occurrence: None)
  Receive Date: 20101028
  Receipt Date: 20101020
  Transmission Date: 20110411
  Serious: Yes (Other)
  Sender: FDA-Public Use
  Company Number: B0680671A

PATIENT
  Sex: Female
  Weight: 51 kg

DRUGS (8)
  1. TYKERB [Suspect]
     Indication: BREAST CANCER
     Dosage: 1250MG PER DAY
     Route: 048
     Dates: start: 20090819, end: 20100316
  2. TYKERB [Suspect]
     Dosage: 1200MG PER DAY
     Route: 048
     Dates: start: 20100519
  3. XELODA [Suspect]
     Dosage: 1200MG PER DAY
     Route: 048
     Dates: start: 20090819, end: 20090916
  4. XELODA [Suspect]
     Dosage: 600MG PER DAY
     Route: 048
     Dates: start: 20090917, end: 20090923
  5. XELODA [Suspect]
     Dosage: 600MG PER DAY
     Route: 048
     Dates: start: 20091007, end: 20100316
  6. XELODA [Suspect]
     Dosage: 600MG PER DAY
     Route: 048
     Dates: start: 20100519
  7. NU-LOTAN [Concomitant]
     Indication: CARDIAC FAILURE
     Route: 048
  8. ARTIST [Concomitant]
     Indication: CARDIAC FAILURE
     Route: 048

REACTIONS (12)
  - ALOPECIA [None]
  - CELLULITIS [None]
  - DIARRHOEA [None]
  - DIZZINESS [None]
  - HEADACHE [None]
  - INSOMNIA [None]
  - MALAISE [None]
  - OEDEMA PERIPHERAL [None]
  - OROPHARYNGEAL DISCOMFORT [None]
  - PARONYCHIA [None]
  - RASH [None]
  - STOMATITIS [None]
